FAERS Safety Report 7137746-0 (Version None)
Quarter: 2010Q4

REPORT INFORMATION
  Report Type: 
  Country: None (occurrence: None)
  Receive Date: 20101119
  Receipt Date: 20101104
  Transmission Date: 20110411
  Serious: Yes (Hospitalization)
  Sender: FDA-Public Use
  Company Number: 021571

PATIENT
  Sex: Female
  Weight: 111.1 kg

DRUGS (1)
  1. CIMZIA [Suspect]
     Indication: CROHN'S DISEASE
     Dosage: (400 MG  1X/28 DAYS, UNDETERMINED ORDER RECEIVED ON 29-DE-2009 SUBCUTANEOUS)
     Route: 058

REACTIONS (2)
  - LABILE BLOOD PRESSURE [None]
  - URINARY TRACT INFECTION [None]
